FAERS Safety Report 8146851-1 (Version None)
Quarter: 2012Q1

REPORT INFORMATION
  Report Type: 
  Country: None (occurrence: None)
  Receive Date: 20120217
  Receipt Date: 20120207
  Transmission Date: 20120608
  Serious: Yes (Hospitalization)
  Sender: FDA-Public Use
  Company Number: DE-MEDIMMUNE-MEDI-0014891

PATIENT
  Sex: Male
  Weight: 4.3 kg

DRUGS (2)
  1. SYNAGIS [Suspect]
     Route: 030
     Dates: start: 20120111, end: 20120111
  2. SYNAGIS [Suspect]
     Route: 030
     Dates: start: 20111207, end: 20111207

REACTIONS (1)
  - BRONCHOPNEUMONIA [None]
